FAERS Safety Report 9926173 (Version 2)
Quarter: 2014Q2

REPORT INFORMATION
  Report Type: Spontaneous
  Country: US (occurrence: US)
  Receive Date: 20140226
  Receipt Date: 20140403
  Transmission Date: 20141212
  Serious: Yes (Other)
  Sender: FDA-Public Use
  Company Number: US-PFIZER INC-2014053154

PATIENT
  Age: 17 Year
  Sex: Female

DRUGS (13)
  1. ZITHROMAX [Suspect]
     Dosage: 250 MG, 1X/DAY
     Route: 048
     Dates: start: 20140219, end: 20140221
  2. PREDNISONE [Suspect]
     Dosage: UNK
  3. BENADRYL [Suspect]
     Dosage: UNK
  4. EPIPEN-2 PAK [Concomitant]
     Dosage: 0.3 MG, AS NEEDED
     Route: 030
  5. PROAIR HFA [Concomitant]
     Dosage: 108 UG, EVERY 4 HRS (INHALE INTO THE LUNGS EVERY 4 HOURS AS NEEDED)
     Route: 055
  6. ZYRTEC ALLERGY [Concomitant]
     Dosage: 10 MG, 2X/DAY
     Route: 048
  7. ZANTAC [Concomitant]
     Dosage: 150 MG, 2X/DAY
     Route: 048
  8. XOPENEX [Concomitant]
     Dosage: 0.63 MG, EVERY 4 HRS (INHALE INTO THE LUNGS EVERY 4 HOURS AS NEEDED)
     Route: 055
  9. XOPENEX HFA [Concomitant]
     Dosage: 45 UG, EVERY 4 HRS (INHALE 2 PUFFS INTO THE LUNGS EVERY 4 HOURS)
     Route: 055
  10. QVARIN [Concomitant]
     Dosage: UNK
     Route: 055
  11. SINGULAIR [Concomitant]
     Dosage: 10 MG, 1X/DAY (TAKE 1 TAB BY MOUTH EVERY EVENING)
     Route: 048
  12. QVAR [Concomitant]
     Dosage: 40 UG, 2X/DAY (INHALE 2 PUFFS INTO THE LUNGS 2 TIMES DAILY)
     Route: 055
  13. DELTASONE [Concomitant]
     Dosage: 20 MG, 2X/DAY
     Route: 048

REACTIONS (3)
  - Anaphylactic reaction [Unknown]
  - Asthma [Unknown]
  - Throat tightness [Recovered/Resolved]
